FAERS Safety Report 18556465 (Version 1)
Quarter: 2020Q4

REPORT INFORMATION
  Report Type: Spontaneous
  Country: GB (occurrence: GB)
  Receive Date: 20201128
  Receipt Date: 20201128
  Transmission Date: 20210114
  Serious: Yes (Disabling)
  Sender: FDA-Public Use
  Company Number: GB-009507513-2011GBR015523

PATIENT
  Age: 73 Year
  Sex: Female

DRUGS (10)
  1. GAVISCON ADVANCE (SODIUM ALGINATE) [Concomitant]
     Dates: start: 20140212, end: 20140213
  2. BUDESONIDE. [Concomitant]
     Active Substance: BUDESONIDE
     Dates: start: 20140212
  3. CERUMOL [Concomitant]
     Dates: start: 20140109, end: 20140112
  4. DICLOFENAC SODIUM. [Concomitant]
     Active Substance: DICLOFENAC SODIUM
     Dates: start: 20140106, end: 20140312
  5. ERYTHROMYCIN. [Concomitant]
     Active Substance: ERYTHROMYCIN
     Dates: start: 20140318, end: 20140325
  6. SIMVASTATIN. [Concomitant]
     Active Substance: SIMVASTATIN
     Dates: start: 20131125, end: 20140319
  7. MOMETASONE FUROATE. [Concomitant]
     Active Substance: MOMETASONE FUROATE
     Dates: start: 20140106, end: 20140107
  8. ACETAMINOPHEN AND CODEINE [Concomitant]
     Active Substance: ACETAMINOPHEN\CODEINE PHOSPHATE
     Dates: start: 20140312
  9. HYPROMELLOSE [Concomitant]
     Active Substance: HYPROMELLOSES
     Dates: start: 20140128, end: 20140225
  10. LISINOPRIL. [Suspect]
     Active Substance: LISINOPRIL
     Dates: start: 20131125

REACTIONS (2)
  - Dermatitis allergic [Recovered/Resolved]
  - Lip swelling [Unknown]

NARRATIVE: CASE EVENT DATE: 20140328
